FAERS Safety Report 18541585 (Version 1)
Quarter: 2020Q4

REPORT INFORMATION
  Report Type: Spontaneous
  Country: DE (occurrence: DE)
  Receive Date: 20201124
  Receipt Date: 20201124
  Transmission Date: 20210114
  Serious: Yes (Other)
  Sender: FDA-Public Use
  Company Number: DE-ASTRAZENECA-2020SF53260

PATIENT
  Age: 58 Year
  Sex: Female
  Weight: 56 kg

DRUGS (6)
  1. HYGROTON [Concomitant]
     Active Substance: CHLORTHALIDONE
     Dates: start: 202011
  2. RAMILICH [Concomitant]
     Active Substance: RAMIPRIL
     Dates: start: 201811
  3. ROSUVASTATIN. [Suspect]
     Active Substance: ROSUVASTATIN
     Dosage: DAILY
     Route: 048
     Dates: start: 201811
  4. CARVEDILOL. [Concomitant]
     Active Substance: CARVEDILOL
     Dates: start: 201811
  5. ACETYLSALICYLIC ACID [Concomitant]
     Active Substance: ASPIRIN
     Dosage: 100
     Dates: start: 201811
  6. LERCANIDIPIN [Concomitant]
     Active Substance: LERCANIDIPINE
     Dates: start: 201811

REACTIONS (5)
  - Myalgia [Not Recovered/Not Resolved]
  - Muscle spasms [Not Recovered/Not Resolved]
  - Tachycardia [Unknown]
  - Palpitations [Not Recovered/Not Resolved]
  - Pruritus [Not Recovered/Not Resolved]

NARRATIVE: CASE EVENT DATE: 201811
